FAERS Safety Report 11033120 (Version 1)
Quarter: 2015Q2

REPORT INFORMATION
  Report Type: Report from Study
  Country: US (occurrence: US)
  Receive Date: 20150415
  Receipt Date: 20150415
  Transmission Date: 20150821
  Serious: Yes (Other)
  Sender: FDA-Public Use
  Company Number: PHEH2014US014362

PATIENT
  Age: 33 Year
  Sex: Male
  Weight: 94 kg

DRUGS (1)
  1. GILENYA [Suspect]
     Active Substance: FINGOLIMOD HYDROCHLORIDE
     Indication: MULTIPLE SCLEROSIS
     Dosage: 0.5 MG, QD
     Route: 048
     Dates: start: 20140716, end: 20150407

REACTIONS (7)
  - Visual impairment [Not Recovered/Not Resolved]
  - Drug ineffective [Unknown]
  - Heart rate decreased [Unknown]
  - Vision blurred [Unknown]
  - Dysgeusia [Recovering/Resolving]
  - Memory impairment [Not Recovered/Not Resolved]
  - Central nervous system lesion [Not Recovered/Not Resolved]

NARRATIVE: CASE EVENT DATE: 20140716
